FAERS Safety Report 6557334-4 (Version None)
Quarter: 2010Q1

REPORT INFORMATION
  Report Type: 
  Country: None (occurrence: None)
  Receive Date: 20100129
  Receipt Date: 20100118
  Transmission Date: 20100710
  Serious: Yes (Death, Hospitalization)
  Sender: FDA-Public Use
  Company Number: FR-JNJFOC-20100107414

PATIENT
  Age: 64 Year
  Sex: Female

DRUGS (6)
  1. REMICADE [Suspect]
     Indication: RHEUMATOID ARTHRITIS
     Dosage: INITIAL INFUSION
     Route: 042
  2. VASTAREL [Suspect]
     Indication: DRUG USE FOR UNKNOWN INDICATION
     Dosage: ^2DF^
     Route: 048
  3. ICAZ [Suspect]
     Indication: HYPERTENSION
     Dosage: ^1DF^
     Route: 048
  4. SPECIAFOLDINE [Suspect]
     Indication: DRUG USE FOR UNKNOWN INDICATION
     Route: 065
  5. CORTANCYL [Suspect]
     Indication: DRUG USE FOR UNKNOWN INDICATION
     Route: 048
  6. METHOTREXATE [Suspect]
     Indication: DRUG USE FOR UNKNOWN INDICATION
     Route: 048

REACTIONS (4)
  - CAPILLARY LEAK SYNDROME [None]
  - GAMMOPATHY [None]
  - OEDEMA [None]
  - SUPRAVENTRICULAR TACHYCARDIA [None]
